FAERS Safety Report 14587276 (Version 1)
Quarter: 2018Q1

REPORT INFORMATION
  Report Type: Spontaneous
  Country: US (occurrence: US)
  Receive Date: 20180228
  Receipt Date: 20180228
  Transmission Date: 20180509
  Serious: Yes (Other)
  Sender: FDA-Public Use
  Company Number: None

PATIENT
  Age: 39 Year
  Sex: Female
  Weight: 76.2 kg

DRUGS (3)
  1. INFLECTRA [Suspect]
     Active Substance: INFLIXIMAB-DYYB
     Indication: CROHN^S DISEASE
     Dosage: ?          OTHER FREQUENCY:ONCE;?
     Route: 041
     Dates: start: 20180207
  2. REMICADE [Concomitant]
     Active Substance: INFLIXIMAB
     Dates: start: 20180124
  3. REMICADE [Concomitant]
     Active Substance: INFLIXIMAB
     Dates: start: 20110118, end: 20111111

REACTIONS (5)
  - Chest discomfort [None]
  - Tachycardia [None]
  - Anxiety [None]
  - Abdominal pain [None]
  - Infusion related reaction [None]

NARRATIVE: CASE EVENT DATE: 20180207
